FAERS Safety Report 6210234-1 (Version None)
Quarter: 2009Q2

REPORT INFORMATION
  Report Type: 
  Country: None (occurrence: None)
  Receive Date: 20090529
  Receipt Date: 20090529
  Transmission Date: 20091009
  Serious: No
  Sender: FDA-Public Use
  Company Number: None

PATIENT
  Age: 41 Year
  Sex: Male
  Weight: 114.76 kg

DRUGS (1)
  1. DIVALPROEX SODIUM [Suspect]
     Indication: PERSONALITY DISORDER
     Dosage: 1000 MG AT BEDTIME PO
     Route: 048
     Dates: start: 20081106, end: 20090507

REACTIONS (1)
  - ALOPECIA [None]
